FAERS Safety Report 7385927-3 (Version None)
Quarter: 2011Q1

REPORT INFORMATION
  Report Type: 
  Country: None (occurrence: None)
  Receive Date: 20110331
  Receipt Date: 20110318
  Transmission Date: 20110831
  Serious: Yes (Other)
  Sender: FDA-Public Use
  Company Number: US-ASTRAZENECA-2011SE17490

PATIENT
  Age: 21853 Day
  Sex: Female
  Weight: 79.4 kg

DRUGS (9)
  1. SEROQUEL [Suspect]
     Indication: BIPOLAR I DISORDER
     Route: 048
     Dates: start: 20030102, end: 20060725
  2. ZYPREXA [Concomitant]
     Dates: start: 19750101
  3. ABILIFY [Concomitant]
     Indication: DEPRESSION
     Dates: start: 20080101
  4. SIMVASTATIN [Concomitant]
     Indication: HYPERLIPIDAEMIA
  5. SEROQUEL [Suspect]
     Indication: BIPOLAR DISORDER
     Route: 048
     Dates: start: 20030102, end: 20060725
  6. SEROQUEL [Suspect]
     Indication: DEPRESSION
     Route: 048
     Dates: start: 20030102, end: 20060725
  7. ABILIFY [Concomitant]
     Indication: BIPOLAR DISORDER
     Dates: start: 20080101
  8. RISPERDAL [Concomitant]
  9. SIMVASTATIN [Concomitant]
     Indication: BLOOD CHOLESTEROL INCREASED

REACTIONS (2)
  - GALLBLADDER DISORDER [None]
  - TYPE 2 DIABETES MELLITUS [None]
